FAERS Safety Report 16883022 (Version 1)
Quarter: 2019Q4

REPORT INFORMATION
  Report Type: Spontaneous
  Country: SE (occurrence: SE)
  Receive Date: 20191004
  Receipt Date: 20191004
  Transmission Date: 20200122
  Serious: Yes (Life-Threatening)
  Sender: FDA-Public Use
  Company Number: SE-TEVA-2019-SE-1115839

PATIENT
  Age: 0 Day
  Sex: Male

DRUGS (5)
  1. LERGIGAN 25 MG (PROMETHAZINE HYDROCHLORIDE) [Suspect]
     Active Substance: PROMETHAZINE HYDROCHLORIDE
     Dosage: 25X4
     Route: 064
  2. QUETIAPINE. [Suspect]
     Active Substance: QUETIAPINE
     Indication: ANXIETY
     Route: 064
     Dates: start: 201908, end: 201909
  3. MELATONIN [Suspect]
     Active Substance: MELATONIN
     Dosage: TN
     Route: 064
  4. PAROXETINE. [Suspect]
     Active Substance: PAROXETINE
     Dosage: 40 MG, 1 DAY
     Route: 064
  5. STESOLID [Suspect]
     Active Substance: DIAZEPAM
     Dosage: 20 MG PER 1 TOTAL
     Route: 064
     Dates: start: 201909, end: 201909

REACTIONS (2)
  - Foetal exposure during pregnancy [Recovered/Resolved]
  - Respiratory depression [Recovered/Resolved]

NARRATIVE: CASE EVENT DATE: 201909
